FAERS Safety Report 7586568-5 (Version None)
Quarter: 2011Q3

REPORT INFORMATION
  Report Type: 
  Country: None (occurrence: None)
  Receive Date: 20110701
  Receipt Date: 20080723
  Transmission Date: 20111222
  Serious: Yes (Death, Other)
  Sender: FDA-Public Use
  Company Number: US-BAYER-200813818NA

PATIENT
  Age: 56 Year
  Sex: Male
  Weight: 102.95 kg

DRUGS (35)
  1. MAGNEVIST [Suspect]
     Indication: ANGIOGRAM
     Dosage: UNK UNK, ONCE
     Dates: start: 20031021, end: 20031021
  2. GADOLINIUM IN UNSPECIFIED DRUG [Concomitant]
     Indication: NUCLEAR MAGNETIC RESONANCE IMAGING
     Dosage: 20 ML, ONCE
     Route: 042
     Dates: start: 20020930, end: 20020930
  3. ZEMPLAR [Concomitant]
     Dates: start: 20050912
  4. EFFEXOR [Concomitant]
     Dates: start: 20060127
  5. PREDNISONE [Concomitant]
     Dosage: ^2.5 DAILY^
  6. SERTRALINE HYDROCHLORIDE [Concomitant]
  7. METOPROLOL TARTRATE [Concomitant]
  8. LISINOPRIL [Concomitant]
     Dates: start: 20050912
  9. RESTORIL [Concomitant]
     Dates: start: 20050912
  10. FERRLECIT [Concomitant]
     Dates: start: 20050912
  11. MULTI-VITAMINS [Concomitant]
     Dosage: 1 TAB
  12. PHOSLO [Concomitant]
     Dosage: 667 MG:  2 WITH MEALS, 1 WITH SNACKS
     Dates: start: 20050912
  13. ASPIRIN [Concomitant]
     Dates: start: 20050912, end: 20060127
  14. THALIDOMIDE [Concomitant]
     Dates: end: 20060127
  15. NEPHROCAPS [Concomitant]
  16. TEMAZEPAM [Concomitant]
  17. EFFEXOR [Concomitant]
     Dates: start: 20050912, end: 20060127
  18. EFFEXOR [Concomitant]
     Dates: start: 20060127
  19. MAGNEVIST [Suspect]
     Dosage: 35 ML, ONCE
     Dates: start: 20050817, end: 20050817
  20. OMNISCAN [Suspect]
     Indication: VENOGRAM
     Dosage: 36 ML, ONCE
     Dates: start: 20020924, end: 20020924
  21. GADOLINIUM IN UNSPECIFIED DRUG [Concomitant]
     Indication: VENOGRAM RENAL
     Dosage: 8 ML, ONCE
     Dates: start: 20020925, end: 20020925
  22. ZOCOR [Concomitant]
     Dates: start: 20060127
  23. RENAGEL [Concomitant]
     Dosage: TAKE BEFORE MEALS
     Dates: start: 20060127
  24. LOPRESSOR [Concomitant]
     Dates: start: 20060127
  25. ZELNORM [Concomitant]
  26. CELLCEPT [Concomitant]
  27. OMNISCAN [Suspect]
     Indication: NUCLEAR MAGNETIC RESONANCE IMAGING
     Dosage: 15 ML, UNK
     Dates: start: 20020924, end: 20020924
  28. PROHANCE [Suspect]
     Indication: NUCLEAR MAGNETIC RESONANCE IMAGING BRAIN
  29. EPOGEN [Concomitant]
     Dates: start: 20050912
  30. RENAGEL [Concomitant]
     Dosage: 800 MG:  4 WITH MEALS
     Dates: start: 20050912, end: 20060127
  31. PLAVIX [Concomitant]
     Dates: start: 20060127
  32. NITROGLYCERIN [Concomitant]
     Indication: CHEST PAIN
     Dates: start: 20060127
  33. SIMVASTATIN [Concomitant]
  34. PROHANCE [Suspect]
     Indication: VENOGRAM
     Dosage: 18 ML, ONCE
     Dates: start: 20011206, end: 20011206
  35. ASPIRIN [Concomitant]
     Dates: start: 20060127

REACTIONS (8)
  - GAIT DISTURBANCE [None]
  - JOINT STIFFNESS [None]
  - INJURY [None]
  - PAIN [None]
  - SKIN EXFOLIATION [None]
  - NEPHROGENIC SYSTEMIC FIBROSIS [None]
  - DRY SKIN [None]
  - FIBROSIS TENDINOUS [None]
